FAERS Safety Report 15682647 (Version 1)
Quarter: 2018Q4

REPORT INFORMATION
  Report Type: Spontaneous
  Country: BR (occurrence: BR)
  Receive Date: 20181203
  Receipt Date: 20181203
  Transmission Date: 20190205
  Serious: Yes (Hospitalization)
  Sender: FDA-Public Use
  Company Number: BR-ALLERGAN-1855889US

PATIENT
  Age: 86 Year
  Sex: Female
  Weight: 38.9 kg

DRUGS (5)
  1. NEBIVOLOL HCL - BP [Suspect]
     Active Substance: NEBIVOLOL
     Indication: HYPERTENSION
     Dosage: 5 MG, QD
     Route: 048
     Dates: start: 2008
  2. ARADOIS [Suspect]
     Active Substance: LOSARTAN POTASSIUM
     Indication: HYPERTENSION
     Dosage: 50 MG, QD
     Route: 048
     Dates: start: 2009
  3. LATANOPROST. [Concomitant]
     Active Substance: LATANOPROST
     Indication: GLAUCOMA
     Dosage: UNK
     Route: 047
  4. ARADOIS [Suspect]
     Active Substance: LOSARTAN POTASSIUM
     Indication: HEART RATE IRREGULAR
  5. NEBIVOLOL HCL - BP [Suspect]
     Active Substance: NEBIVOLOL
     Indication: HEART RATE IRREGULAR

REACTIONS (12)
  - Fall [Unknown]
  - Somnolence [Unknown]
  - Agitation [Unknown]
  - Decreased appetite [Unknown]
  - Product use in unapproved indication [Unknown]
  - Head injury [Unknown]
  - Dysphagia [Unknown]
  - Eating disorder [Unknown]
  - Mood altered [Unknown]
  - Wrong technique in product usage process [Unknown]
  - Blood calcium increased [Unknown]
  - Fatigue [Unknown]

NARRATIVE: CASE EVENT DATE: 2008
